FAERS Safety Report 6160522-2 (Version None)
Quarter: 2009Q2

REPORT INFORMATION
  Report Type: 
  Country: None (occurrence: None)
  Receive Date: 20090415
  Receipt Date: 20090415
  Transmission Date: 20091009
  Serious: No
  Sender: FDA-Public Use
  Company Number: None

PATIENT
  Sex: Female

DRUGS (1)
  1. GLEEVEC [Suspect]
     Indication: CHRONIC MYELOID LEUKAEMIA
     Dosage: 3 TABLETS DAILY PO
     Route: 048

REACTIONS (3)
  - MUSCLE SPASMS [None]
  - SKIN DISORDER [None]
  - SKIN HAEMORRHAGE [None]
